FAERS Safety Report 7807549-X (Version None)
Quarter: 2011Q4

REPORT INFORMATION
  Report Type: 
  Country: None (occurrence: None)
  Receive Date: 20111011
  Receipt Date: 20111005
  Transmission Date: 20120403
  Serious: Yes (Other)
  Sender: FDA-Public Use
  Company Number: BR-GLAXOSMITHKLINE-A0948516A

PATIENT
  Sex: Female

DRUGS (1)
  1. DIGOXIN [Suspect]
     Indication: PRODUCT USED FOR UNKNOWN INDICATION
     Route: 065

REACTIONS (4)
  - MEMORY IMPAIRMENT [None]
  - SPEECH DISORDER [None]
  - CEREBROVASCULAR ACCIDENT [None]
  - DISORIENTATION [None]
